FAERS Safety Report 7627937-4 (Version None)
Quarter: 2011Q3

REPORT INFORMATION
  Report Type: 
  Country: None (occurrence: None)
  Receive Date: 20110722
  Receipt Date: 20110710
  Transmission Date: 20111222
  Serious: Yes (Death)
  Sender: FDA-Public Use
  Company Number: TR-MYLANLABS-2011S1014586

PATIENT
  Age: 13 Month
  Sex: Female
  Weight: 10 kg

DRUGS (1)
  1. DICLOFENAC SODIUM [Suspect]
     Indication: PAIN
     Route: 030

REACTIONS (2)
  - OVERDOSE [None]
  - RHABDOMYOLYSIS [None]
